FAERS Safety Report 23813453 (Version 1)
Quarter: 2024Q2

REPORT INFORMATION
  Report Type: Spontaneous
  Country: US (occurrence: US)
  Receive Date: 20240503
  Receipt Date: 20240503
  Transmission Date: 20240716
  Serious: Yes (Hospitalization, Other)
  Sender: FDA-Public Use
  Company Number: US-AMGEN-USASP2024083562

PATIENT
  Age: 42 Year
  Sex: Male

DRUGS (6)
  1. FILGRASTIM [Suspect]
     Active Substance: FILGRASTIM
     Indication: Infantile genetic agranulocytosis
     Route: 065
  2. LEUCOVORIN [Concomitant]
     Active Substance: LEUCOVORIN\LEUCOVORIN CALCIUM
  3. OXALIPLATIN [Concomitant]
     Active Substance: OXALIPLATIN
     Dosage: 85 MILLILITRE PER SQUARE METRE, 14 DAYS
     Route: 042
  4. LEUCOVORIN [Concomitant]
     Active Substance: LEUCOVORIN\LEUCOVORIN CALCIUM
     Dosage: 400 MILLIGRAM/SQ. METER, INFUSED OVER 2 HOURS, 14 DAYS
     Route: 042
  5. FLUOROURACIL [Concomitant]
     Active Substance: FLUOROURACIL
     Dosage: 400 MILLIGRAM/SQ. METER, BOLUS INFUSED OVER TWO HOURS 14D
     Route: 042
  6. FLUOROURACIL [Concomitant]
     Active Substance: FLUOROURACIL
     Dosage: 2400 MILLIGRAM/SQ. METER, INFUSION PUMP STARTED DL AND ADMINISTERED OVER 46 HOURS
     Route: 042

REACTIONS (9)
  - Infection [Recovered/Resolved]
  - Rectal adenocarcinoma [Recovered/Resolved]
  - Nephrolithiasis [Recovered/Resolved]
  - Hepatosplenomegaly [Recovered/Resolved]
  - Intestinal perforation [Recovered/Resolved]
  - Myelosuppression [Unknown]
  - Leukopenia [Unknown]
  - Serum ferritin increased [Unknown]
  - Anaemia [Unknown]
